FAERS Safety Report 4694298-2 (Version None)
Quarter: 2005Q2

REPORT INFORMATION
  Report Type: 
  Country: None (occurrence: None)
  Receive Date: 20050620
  Receipt Date: 20030721
  Transmission Date: 20051028
  Serious: Yes (Death)
  Sender: FDA-Public Use
  Company Number: US-ABBOTT-03P-163-0225987-00

PATIENT
  Sex: Male
  Weight: 94.432 kg

DRUGS (3)
  1. HYDROCODONE BITARTRATE [Suspect]
     Dates: end: 20020101
  2. ALPRAZOLAM [Suspect]
     Indication: DRUG USE FOR UNKNOWN INDICATION
     Dates: end: 20020101
  3. AMITRIPTYLINE [Suspect]
     Indication: DRUG USE FOR UNKNOWN INDICATION
     Dates: end: 20020101

REACTIONS (3)
  - ALCOHOL POISONING [None]
  - DRUG LEVEL INCREASED [None]
  - DRUG TOXICITY [None]
